FAERS Safety Report 9846680 (Version 2)
Quarter: 2014Q1

REPORT INFORMATION
  Report Type: Spontaneous
  Country: DE (occurrence: DE)
  Receive Date: 20140127
  Receipt Date: 20140127
  Transmission Date: 20141002
  Serious: Yes (Hospitalization)
  Sender: FDA-Public Use
  Company Number: DE-ALEXION PHARMACEUTICALS INC.-A201304442

PATIENT
  Age: 54 Year
  Sex: Male

DRUGS (5)
  1. SOLIRIS 300MG [Suspect]
     Indication: HAEMOLYTIC URAEMIC SYNDROME
     Dosage: 900 MG, QW
     Dates: start: 20130623, end: 20130719
  2. SOLIRIS 300MG [Suspect]
     Dosage: 1200 MG, Q2W
     Route: 042
     Dates: start: 20131010
  3. MYCOPHENOLATE MOFETIL [Concomitant]
     Indication: TRANSPLANT
     Dosage: 360 MG, QD
     Route: 048
     Dates: start: 20120610
  4. PREDNISOLONE [Concomitant]
     Indication: TRANSPLANT
     Dosage: 10 MG, QD
     Route: 048
     Dates: start: 20130619
  5. CICLOSPORIN [Concomitant]
     Indication: TRANSPLANT
     Dosage: 100 MG, QD
     Route: 048
     Dates: start: 20130802

REACTIONS (5)
  - Erysipelas [Recovering/Resolving]
  - Impaired healing [Unknown]
  - Pyrexia [Unknown]
  - Chills [Unknown]
  - Oedema [Unknown]
